FAERS Safety Report 21282184 (Version 2)
Quarter: 2023Q4

REPORT INFORMATION
  Report Type: Spontaneous
  Country: US (occurrence: US)
  Receive Date: 20220901
  Receipt Date: 20231010
  Transmission Date: 20240110
  Serious: No
  Sender: FDA-Public Use
  Company Number: US-ABBVIE-22K-163-4492849-00

PATIENT
  Sex: Female
  Weight: 74.842 kg

DRUGS (2)
  1. HUMIRA [Suspect]
     Active Substance: ADALIMUMAB
     Indication: Product used for unknown indication
     Dosage: FORM STRENGTH: 80MG
     Route: 058
     Dates: end: 202110
  2. HUMIRA [Suspect]
     Active Substance: ADALIMUMAB
     Dosage: RESTARTED?FORM STRENGTH: 80MG
     Route: 058
     Dates: start: 2022

REACTIONS (3)
  - Maternal exposure during pregnancy [Unknown]
  - Injection site discharge [Recovered/Resolved]
  - Live birth [Unknown]
